FAERS Safety Report 21226328 (Version 1)
Quarter: 2022Q3

REPORT INFORMATION
  Report Type: Report from Study
  Country: CN (occurrence: CN)
  Receive Date: 20220818
  Receipt Date: 20220818
  Transmission Date: 20221026
  Serious: Yes (Life-Threatening, Hospitalization, Other)
  Sender: FDA-Public Use
  Company Number: CN-BRISTOL-MYERS SQUIBB COMPANY-2022-091442

PATIENT
  Age: 65 Year
  Sex: Male
  Weight: 60 kg

DRUGS (20)
  1. AZACITIDINE [Suspect]
     Active Substance: AZACITIDINE
     Indication: Acute myeloid leukaemia
     Dosage: LAST DOSE OF CYCLE 2 PRIOR TO SAE 18-MAY-2022
     Route: 058
     Dates: start: 20220404, end: 20220518
  2. AZACITIDINE [Suspect]
     Active Substance: AZACITIDINE
     Route: 058
     Dates: start: 20220404
  3. VENETOCLAX [Suspect]
     Active Substance: VENETOCLAX
     Indication: Acute myeloid leukaemia
     Dosage: 400 MG (400 MG,-
     Route: 048
     Dates: start: 20220404, end: 20220530
  4. AMINOMETHYLBENZOIC ACID [Concomitant]
     Active Substance: AMINOMETHYLBENZOIC ACID
     Indication: Haemorrhage
     Dosage: 1 IN 1 D
     Route: 041
  5. AMINOMETHYLBENZOIC ACID [Concomitant]
     Active Substance: AMINOMETHYLBENZOIC ACID
     Route: 041
  6. AMINOMETHYLBENZOIC ACID [Concomitant]
     Active Substance: AMINOMETHYLBENZOIC ACID
     Route: 041
  7. AMINOMETHYLBENZOIC ACID [Concomitant]
     Active Substance: AMINOMETHYLBENZOIC ACID
     Route: 041
     Dates: start: 20220325, end: 20220429
  8. AMINOMETHYLBENZOIC ACID [Concomitant]
     Active Substance: AMINOMETHYLBENZOIC ACID
     Dosage: 1 IN 1 D
     Route: 041
     Dates: start: 20220509, end: 20220523
  9. AMINOMETHYLBENZOIC ACID [Concomitant]
     Active Substance: AMINOMETHYLBENZOIC ACID
     Route: 041
     Dates: start: 20220529
  10. ETHAMSYLATE [Concomitant]
     Active Substance: ETHAMSYLATE
     Indication: Haemorrhage
     Dosage: 1 IN 1 D
     Route: 041
     Dates: start: 20220325, end: 20220429
  11. ETHAMSYLATE [Concomitant]
     Active Substance: ETHAMSYLATE
     Dosage: 1 IN 1 D
     Route: 042
     Dates: start: 20220509, end: 20220523
  12. HYDROTALCITE [Concomitant]
     Active Substance: HYDROTALCITE
     Indication: Gastrooesophageal reflux disease
     Dosage: 3 IN 1 D
     Route: 048
  13. HYDROTALCITE [Concomitant]
     Active Substance: HYDROTALCITE
     Dosage: 3 IN 1 D
     Route: 048
     Dates: start: 20220401
  14. ONDANSETRON HYDROCHLORIDE [Concomitant]
     Active Substance: ONDANSETRON HYDROCHLORIDE
     Indication: Antiemetic supportive care
     Dosage: 1 IN 1 D
     Route: 042
     Dates: start: 20220404, end: 20220414
  15. ONDANSETRON HYDROCHLORIDE [Concomitant]
     Active Substance: ONDANSETRON HYDROCHLORIDE
     Dosage: 1 IN 1 D
     Route: 042
     Dates: start: 20220512, end: 20220523
  16. VITAMIN K1 [Concomitant]
     Active Substance: PHYTONADIONE
     Indication: Haemorrhage
     Dosage: 1 IN 1 D
     Route: 041
     Dates: start: 20220325, end: 20220429
  17. VITAMIN K1 [Concomitant]
     Active Substance: PHYTONADIONE
     Dosage: 1 IN 1 D
     Route: 041
     Dates: start: 20220509, end: 20220523
  18. CEFOTAXIME SODIUM [Concomitant]
     Active Substance: CEFOTAXIME SODIUM
     Indication: Infection
     Dosage: 1 IN 8 HR
     Route: 041
  19. CEFOTAXIME SODIUM [Concomitant]
     Active Substance: CEFOTAXIME SODIUM
     Dosage: 1 IN 8 HR
     Route: 041
  20. HUMAN GRANULOCYTE STIMULATING FACTOR [Concomitant]
     Indication: Granulocyte percentage increased
     Dosage: 1 IN 1 D
     Route: 041
     Dates: start: 20220509

REACTIONS (2)
  - Pneumonia [Not Recovered/Not Resolved]
  - Myelosuppression [Recovered/Resolved]

NARRATIVE: CASE EVENT DATE: 20220528
